FAERS Safety Report 6182698-3 (Version None)
Quarter: 2009Q2

REPORT INFORMATION
  Report Type: 
  Country: None (occurrence: None)
  Receive Date: 20090507
  Receipt Date: 20090429
  Transmission Date: 20091009
  Serious: Yes (Hospitalization, Other)
  Sender: FDA-Public Use
  Company Number: B0570756A

PATIENT
  Sex: Female
  Weight: 74.4 kg

DRUGS (5)
  1. LAPATINIB [Suspect]
     Indication: BREAST CANCER
     Dosage: 1500MG PER DAY
     Route: 048
     Dates: start: 20090319
  2. WARFARIN [Concomitant]
     Indication: DEEP VEIN THROMBOSIS
     Dosage: 5MG UNKNOWN
     Route: 048
     Dates: start: 20090401
  3. ADALAT [Concomitant]
     Indication: HYPERTENSION
     Route: 048
     Dates: start: 20070101
  4. RIDAQ [Concomitant]
     Indication: HYPERTENSION
     Route: 048
     Dates: start: 20070101
  5. PREXUM [Concomitant]
     Indication: HYPERTENSION
     Route: 048
     Dates: start: 20070101

REACTIONS (17)
  - BLOOD CREATININE INCREASED [None]
  - BLOOD GLUCOSE INCREASED [None]
  - CHILLS [None]
  - CIRCULATORY COLLAPSE [None]
  - CONFUSIONAL STATE [None]
  - FALL [None]
  - HEART RATE INCREASED [None]
  - INTERNATIONAL NORMALISED RATIO INCREASED [None]
  - NAUSEA [None]
  - OPEN WOUND [None]
  - PURULENT DISCHARGE [None]
  - PYREXIA [None]
  - RASH [None]
  - SEPSIS [None]
  - SKIN EXFOLIATION [None]
  - SKIN LACERATION [None]
  - VOMITING [None]
